FAERS Safety Report 19383841 (Version 1)
Quarter: 2021Q2

REPORT INFORMATION
  Report Type: Spontaneous
  Country: IT (occurrence: IT)
  Receive Date: 20210608
  Receipt Date: 20210608
  Transmission Date: 20210717
  Serious: Yes (Hospitalization, Other)
  Sender: FDA-Public Use
  Company Number: IT-AUROBINDO-AUR-APL-2017-07241

PATIENT
  Age: 7 Year
  Sex: Female

DRUGS (4)
  1. GEMCITABINE. [Concomitant]
     Active Substance: GEMCITABINE
     Indication: NEUROFIBROSARCOMA
     Dosage: 1000 MG/M2
  2. OXALIPLATIN. [Suspect]
     Active Substance: OXALIPLATIN
     Dosage: 800 MILLIGRAM
     Route: 065
  3. GEMCITABINE. [Concomitant]
     Active Substance: GEMCITABINE
     Dosage: 800 MILLIGRAM
     Route: 065
  4. OXALIPLATIN. [Suspect]
     Active Substance: OXALIPLATIN
     Indication: NEUROFIBROSARCOMA
     Dosage: A 2?HR INFUSION OF 100 MG/M2
     Route: 065

REACTIONS (21)
  - Anaemia [Recovered/Resolved]
  - Abdominal pain [Recovered/Resolved]
  - Renal failure [Recovered/Resolved]
  - Vomiting [Recovered/Resolved]
  - Dizziness [Recovered/Resolved]
  - Product prescribing error [Unknown]
  - Respiratory distress [Recovered/Resolved]
  - Thrombocytopenia [Not Recovered/Not Resolved]
  - Lethargy [Recovered/Resolved]
  - Slow response to stimuli [Recovered/Resolved]
  - Nystagmus [Recovered/Resolved]
  - Bronchospasm [Recovered/Resolved]
  - Pyrexia [Recovered/Resolved]
  - Diarrhoea [Recovered/Resolved]
  - Joint hyperextension [Recovered/Resolved]
  - Muscular weakness [Recovered/Resolved]
  - Medication error [Unknown]
  - Paraesthesia [Recovered/Resolved]
  - Constipation [Recovered/Resolved]
  - Pain in extremity [Recovered/Resolved]
  - Overdose [Unknown]
